FAERS Safety Report 16837031 (Version 1)
Quarter: 2019Q3

REPORT INFORMATION
  Report Type: Spontaneous
  Country: BE (occurrence: BE)
  Receive Date: 20190923
  Receipt Date: 20190923
  Transmission Date: 20191005
  Serious: No
  Sender: FDA-Public Use
  Company Number: BE-NOVEN PHARMACEUTICALS, INC.-BE2018000578

PATIENT

DRUGS (5)
  1. ESTRADIOL/NORETHISTERONE ACETATE [Suspect]
     Active Substance: ESTRADIOL\NORETHINDRONE ACETATE
     Dosage: 50/250 MCG, 1 DF (WHOLE PATCH AT A TIME)
     Route: 062
  2. TEMESTA [Concomitant]
  3. ESTRADIOL/NORETHISTERONE ACETATE [Suspect]
     Active Substance: ESTRADIOL\NORETHINDRONE ACETATE
     Indication: BLOOD OESTROGEN DECREASED
     Dosage: 50/250 MCG, 1 DF (WHOLE PATCH AT A TIME)
     Route: 062
  4. REDOMEX [Concomitant]
     Active Substance: AMITRIPTYLINE HYDROCHLORIDE
  5. ESTRADIOL/NORETHISTERONE ACETATE [Suspect]
     Active Substance: ESTRADIOL\NORETHINDRONE ACETATE
     Dosage: 0.5 DF,  UNK (ALTOGETHER ONE PATCH PER WEEK)
     Route: 062

REACTIONS (7)
  - Night sweats [Recovered/Resolved]
  - Skin disorder [Recovering/Resolving]
  - Breast enlargement [Unknown]
  - Hyperhidrosis [Recovered/Resolved]
  - Dehydration [Unknown]
  - Sleep disorder [Recovering/Resolving]
  - Wrong technique in product usage process [Unknown]

NARRATIVE: CASE EVENT DATE: 2018
